APPROVED DRUG PRODUCT: DEXAMETHASONE SODIUM PHOSPHATE
Active Ingredient: DEXAMETHASONE SODIUM PHOSPHATE
Strength: EQ 10MG PHOSPHATE/ML
Dosage Form/Route: INJECTABLE;INJECTION
Application: A210967 | Product #001
Applicant: EUGIA PHARMA SPECIALITIES LTD
Approved: Jun 7, 2019 | RLD: No | RS: No | Type: DISCN